FAERS Safety Report 10052333 (Version 1)
Quarter: 2014Q2

REPORT INFORMATION
  Report Type: Spontaneous
  Country: US (occurrence: US)
  Receive Date: 20140402
  Receipt Date: 20140402
  Transmission Date: 20141212
  Serious: Yes (Other)
  Sender: FDA-Public Use
  Company Number: US-JNJFOC-20140316407

PATIENT
  Age: 76 Year
  Sex: Female

DRUGS (2)
  1. STELARA [Suspect]
     Indication: PSORIASIS
     Route: 058
     Dates: start: 20130517
  2. STELARA [Suspect]
     Indication: PSORIASIS
     Route: 058
     Dates: start: 20131203

REACTIONS (1)
  - Pneumonia [Unknown]
